FAERS Safety Report 8312272-1 (Version None)
Quarter: 2012Q2

REPORT INFORMATION
  Report Type: 
  Country: None (occurrence: None)
  Receive Date: 20120425
  Receipt Date: 20120418
  Transmission Date: 20120825
  Serious: Yes (Hospitalization)
  Sender: FDA-Public Use
  Company Number: IE-TEVA-334741USA

PATIENT
  Age: 65 Year
  Sex: Male
  Weight: 93.1 kg

DRUGS (12)
  1. PREDNISOLONE [Suspect]
     Indication: PNEUMONITIS
     Dosage: 10 MILLIGRAM;
     Route: 048
  2. LIDOCAINE [Concomitant]
     Indication: BACK PAIN
     Dates: start: 20120323
  3. OXYCODONE HCL [Concomitant]
     Indication: BACK PAIN
     Dosage: 20 MILLIGRAM;
     Dates: start: 20120323
  4. BISOPROLOL FUMARATE [Concomitant]
     Indication: TACHYCARDIA
     Dosage: 1.25 MILLIGRAM;
     Dates: start: 20120301
  5. PREGABALIN [Concomitant]
     Indication: BACK PAIN
     Dosage: 100 MILLIGRAM;
     Dates: start: 20120326, end: 20120402
  6. OXYCODONE HCL [Concomitant]
     Dates: start: 20120323
  7. TREANDA [Suspect]
     Indication: NON-HODGKIN'S LYMPHOMA
     Route: 042
     Dates: start: 20120202
  8. HEPARIN-FRACTION, SODIUM SALT [Concomitant]
     Indication: PULMONARY EMBOLISM
     Dates: start: 20110509, end: 20120405
  9. TAMSULOSIN HCL [Concomitant]
     Indication: LOWER URINARY TRACT SYMPTOMS
     Dates: start: 20110810
  10. ESOMEPRAZOLE MAGNESIUM [Concomitant]
     Indication: DYSPEPSIA
     Dosage: 40 MILLIGRAM;
     Dates: start: 20111114
  11. ALLOPURINOL [Concomitant]
     Indication: PROPHYLAXIS
     Route: 048
     Dates: start: 20091209
  12. RITUXIMAB [Suspect]
     Indication: NON-HODGKIN'S LYMPHOMA
     Route: 042
     Dates: start: 20120202

REACTIONS (1)
  - PNEUMONITIS [None]
